FAERS Safety Report 4390853-8 (Version None)
Quarter: 2004Q3

REPORT INFORMATION
  Report Type: 
  Country: None (occurrence: None)
  Receive Date: 20040702
  Receipt Date: 20040702
  Transmission Date: 20050211
  Serious: Yes (Life-Threatening, Hospitalization)
  Sender: FDA-Public Use
  Company Number: None

PATIENT
  Age: 57 Year
  Sex: Male
  Weight: 99 kg

DRUGS (1)
  1. J + J CORDIS CYPHER ELUTING STENT [Suspect]
     Dates: start: 20040404

REACTIONS (3)
  - CHEST PAIN [None]
  - STENT OCCLUSION [None]
  - SURGICAL PROCEDURE REPEATED [None]
